FAERS Safety Report 11941419 (Version 1)
Quarter: 2016Q1

REPORT INFORMATION
  Report Type: Other
  Country: US (occurrence: US)
  Receive Date: 20160122
  Receipt Date: 20160122
  Transmission Date: 20160526
  Serious: Yes (Other)
  Sender: FDA-Public Use
  Company Number: US-GUTHY-RENKER LLC-1046821

PATIENT
  Age: 25 Year
  Sex: Female

DRUGS (1)
  1. VITACLEAR VITAMINS [Suspect]
     Active Substance: MINERALS\VITAMINS
     Indication: VITAMIN SUPPLEMENTATION
     Route: 048
     Dates: start: 20151116, end: 20151119

REACTIONS (6)
  - Pharyngeal oedema [Recovered/Resolved]
  - Hypersensitivity [None]
  - Lip swelling [None]
  - Swelling face [None]
  - Reaction to colouring [None]
  - Throat irritation [None]

NARRATIVE: CASE EVENT DATE: 20151119
